FAERS Safety Report 4723227-8 (Version None)
Quarter: 2005Q3

REPORT INFORMATION
  Report Type: 
  Country: None (occurrence: None)
  Receive Date: 20050725
  Receipt Date: 20050712
  Transmission Date: 20060218
  Serious: Yes (Hospitalization, Disabling, Other)
  Sender: FDA-Public Use
  Company Number: US-JNJFOC-20050301237

PATIENT
  Sex: Female
  Weight: 72.58 kg

DRUGS (33)
  1. REMICADE [Suspect]
     Route: 042
  2. REMICADE [Suspect]
     Route: 042
  3. REMICADE [Suspect]
     Route: 042
  4. REMICADE [Suspect]
     Route: 042
  5. REMICADE [Suspect]
     Route: 042
  6. REMICADE [Suspect]
     Route: 042
  7. REMICADE [Suspect]
     Route: 042
  8. REMICADE [Suspect]
     Route: 042
  9. REMICADE [Suspect]
     Route: 042
  10. REMICADE [Suspect]
     Route: 042
  11. REMICADE [Suspect]
     Route: 042
  12. REMICADE [Suspect]
     Route: 042
  13. REMICADE [Suspect]
     Route: 042
  14. REMICADE [Suspect]
     Route: 042
  15. REMICADE [Suspect]
     Route: 042
  16. REMICADE [Suspect]
     Route: 042
  17. REMICADE [Suspect]
     Route: 042
  18. REMICADE [Suspect]
     Route: 042
  19. REMICADE [Suspect]
     Dosage: 6MG/KG
     Route: 042
  20. REMICADE [Suspect]
     Route: 042
  21. REMICADE [Suspect]
     Route: 042
  22. REMICADE [Suspect]
     Route: 042
  23. REMICADE [Suspect]
     Route: 042
  24. REMICADE [Suspect]
     Route: 042
  25. PREDNISONE [Concomitant]
     Route: 048
  26. GLUCOPHAGE [Concomitant]
     Route: 048
  27. PRILOSEC [Concomitant]
     Route: 048
  28. GLUCOTROL [Concomitant]
     Route: 048
  29. ACTOS [Concomitant]
     Route: 048
  30. METHOTREXATE [Concomitant]
     Dosage: 3 TABS
  31. MIDRIN [Concomitant]
  32. MIDRIN [Concomitant]
  33. MIDRIN [Concomitant]
     Indication: MIGRAINE
     Dosage: AS NECESSARY. 1-2 TABS.

REACTIONS (20)
  - ANAEMIA [None]
  - ANXIETY [None]
  - BLOOD ALKALINE PHOSPHATASE INCREASED [None]
  - CHOLELITHIASIS [None]
  - DEHYDRATION [None]
  - DEPRESSION [None]
  - DIABETIC KETOACIDOSIS [None]
  - GAMMA-GLUTAMYLTRANSFERASE INCREASED [None]
  - GASTROENTERITIS [None]
  - HEPATIC STEATOSIS [None]
  - HISTOPLASMOSIS [None]
  - HYPERCALCAEMIA [None]
  - MYCOBACTERIAL INFECTION [None]
  - NAUSEA [None]
  - PNEUMONIA [None]
  - RENAL FAILURE ACUTE [None]
  - URINARY TRACT INFECTION [None]
  - UROSEPSIS [None]
  - VOMITING [None]
  - WEIGHT DECREASED [None]
